FAERS Safety Report 18238434 (Version 1)
Quarter: 2020Q3

REPORT INFORMATION
  Report Type: Other
  Country: US (occurrence: US)
  Receive Date: 20200907
  Receipt Date: 20200907
  Transmission Date: 20201103
  Serious: Yes (Hospitalization)
  Sender: FDA-Public Use
  Company Number: US-ROCHE-2665400

PATIENT
  Age: 47 Year
  Sex: Male
  Weight: 59.02 kg

DRUGS (10)
  1. RITUXAN [Suspect]
     Active Substance: RITUXIMAB
     Indication: MICROSCOPIC POLYANGIITIS
     Route: 042
  2. COREG [Concomitant]
     Active Substance: CARVEDILOL
     Indication: CARDIAC FAILURE
     Dosage: ONGOING: YES
     Route: 048
     Dates: start: 2002
  3. PREDNISONE. [Concomitant]
     Active Substance: PREDNISONE
     Indication: INFLAMMATION
     Dosage: ONGOING: YES
     Route: 048
     Dates: start: 2004
  4. BENADRYL [Concomitant]
     Active Substance: DIPHENHYDRAMINE HYDROCHLORIDE
     Dosage: ONGOING: NO
  5. RITUXAN [Suspect]
     Active Substance: RITUXIMAB
     Indication: CONNECTIVE TISSUE DISORDER
     Dosage: ONGOING: NO
     Route: 042
     Dates: start: 201907, end: 201907
  6. RITUXAN [Suspect]
     Active Substance: RITUXIMAB
     Indication: VASCULITIS
  7. METOPROLOL. [Concomitant]
     Active Substance: METOPROLOL
     Indication: CARDIAC FAILURE
     Dosage: 2 TO 4 TIMES A DAY ;ONGOING: YES, 1 DAY
     Route: 048
     Dates: start: 2017
  8. PAXIL [Concomitant]
     Active Substance: PAROXETINE HYDROCHLORIDE
     Indication: DEPRESSION
     Dosage: ONGOING: YES
     Route: 048
     Dates: start: 2005
  9. RITUXAN [Suspect]
     Active Substance: RITUXIMAB
     Indication: GRANULOMATOSIS WITH POLYANGIITIS
  10. MS CONTIN [Concomitant]
     Active Substance: MORPHINE SULFATE
     Indication: PAIN
     Dosage: ONGOING: YES
     Route: 048

REACTIONS (5)
  - Blood pressure increased [Not Recovered/Not Resolved]
  - General physical health deterioration [Unknown]
  - Atrial fibrillation [Not Recovered/Not Resolved]
  - Heart rate increased [Not Recovered/Not Resolved]
  - Palpitations [Unknown]

NARRATIVE: CASE EVENT DATE: 201907
